FAERS Safety Report 20061831 (Version 8)
Quarter: 2022Q3

REPORT INFORMATION
  Report Type: Spontaneous
  Country: JP (occurrence: JP)
  Receive Date: 20211112
  Receipt Date: 20220916
  Transmission Date: 20221027
  Serious: Yes (Hospitalization, Other)
  Sender: FDA-Public Use
  Company Number: JP-ONO-2021JP017685

PATIENT
  Age: 60 Year
  Sex: Male
  Weight: 79 kg

DRUGS (7)
  1. YERVOY [Suspect]
     Active Substance: IPILIMUMAB
     Indication: Non-small cell lung cancer recurrent
     Dosage: 70 MG
     Route: 041
     Dates: start: 20210625
  2. YERVOY [Suspect]
     Active Substance: IPILIMUMAB
     Dosage: 70 MG
     Route: 041
     Dates: start: 20210820
  3. OPDIVO [Suspect]
     Active Substance: NIVOLUMAB
     Indication: Non-small cell lung cancer recurrent
     Dosage: 360 MILLIGRAM
     Route: 041
     Dates: start: 20210625
  4. OPDIVO [Suspect]
     Active Substance: NIVOLUMAB
     Route: 041
     Dates: start: 20210728
  5. PACLITAXEL [Concomitant]
     Active Substance: PACLITAXEL
     Indication: Non-small cell lung cancer recurrent
     Dosage: 360 MG
     Route: 065
     Dates: start: 20210625
  6. PACLITAXEL [Concomitant]
     Active Substance: PACLITAXEL
     Dosage: UNK
     Route: 065
  7. CARBOPLATIN [Concomitant]
     Active Substance: CARBOPLATIN
     Indication: Non-small cell lung cancer recurrent
     Dosage: UNK
     Route: 065
     Dates: start: 20210625

REACTIONS (11)
  - Polyarthritis [Recovered/Resolved]
  - Adrenocorticotropic hormone deficiency [Recovering/Resolving]
  - Septic shock [Unknown]
  - Cytokine release syndrome [Unknown]
  - Shock [Unknown]
  - Altered state of consciousness [Unknown]
  - Acute kidney injury [Unknown]
  - Pyrexia [Unknown]
  - Inflammatory marker increased [Unknown]
  - Adrenal insufficiency [Recovering/Resolving]
  - Off label use [Unknown]

NARRATIVE: CASE EVENT DATE: 20210625
